FAERS Safety Report 20090176 (Version 1)
Quarter: 2021Q4

REPORT INFORMATION
  Report Type: Report from Study
  Country: IN (occurrence: IN)
  Receive Date: 20211119
  Receipt Date: 20211119
  Transmission Date: 20220303
  Serious: Yes (Death, Hospitalization)
  Sender: FDA-Public Use
  Company Number: IN-NOVARTISPH-NVSC2021IN263714

PATIENT
  Age: 41 Year
  Sex: Female

DRUGS (1)
  1. CERTICAN [Suspect]
     Active Substance: EVEROLIMUS
     Indication: Heart transplant
     Dosage: 0.25 MG, QD
     Route: 065
     Dates: start: 20200120

REACTIONS (1)
  - SARS-CoV-2 test positive [Fatal]

NARRATIVE: CASE EVENT DATE: 20211103
